FAERS Safety Report 22347691 (Version 1)
Quarter: 2023Q2

REPORT INFORMATION
  Report Type: Report from Study
  Country: US (occurrence: US)
  Receive Date: 20230522
  Receipt Date: 20230522
  Transmission Date: 20230721
  Serious: Yes (Other)
  Sender: FDA-Public Use
  Company Number: US-ACADIA PHARMACEUTICALS INC.-ACA-2023-TRF-001649

PATIENT
  Age: 13 Year
  Sex: Female

DRUGS (10)
  1. DAYBUE [Suspect]
     Active Substance: TROFINETIDE
     Indication: Rett syndrome
     Dosage: 25 MILLILITER, BID VIA GTUBE
     Dates: start: 20230425
  2. DAYBUE [Suspect]
     Active Substance: TROFINETIDE
     Dosage: 25 ML IN AM AND 50 ML IN PM, VIA GTUBE
     Route: 048
     Dates: start: 20230509
  3. DAYBUE [Suspect]
     Active Substance: TROFINETIDE
     Dosage: 50 MILLILITER, BID VIA GTUBE
     Route: 050
  4. ONFI [Concomitant]
     Active Substance: CLOBAZAM
  5. VIMPAT [Concomitant]
     Active Substance: LACOSAMIDE
  6. NEXIUM I.V. [Concomitant]
     Active Substance: ESOMEPRAZOLE SODIUM
  7. VALPROIC ACID [Concomitant]
     Active Substance: VALPROIC ACID
  8. KLONOPIN [Concomitant]
     Active Substance: CLONAZEPAM
  9. ZYRTEC [Concomitant]
     Active Substance: CETIRIZINE HYDROCHLORIDE
  10. NAYZILAM [Concomitant]
     Active Substance: MIDAZOLAM

REACTIONS (3)
  - Seizure [Not Recovered/Not Resolved]
  - Prescribed underdose [Recovered/Resolved]
  - Diarrhoea [Not Recovered/Not Resolved]

NARRATIVE: CASE EVENT DATE: 20230425
